FAERS Safety Report 6722776-0 (Version None)
Quarter: 2010Q2

REPORT INFORMATION
  Report Type: 
  Country: None (occurrence: None)
  Receive Date: 20100511
  Receipt Date: 20100503
  Transmission Date: 20101027
  Serious: Yes (Disabling)
  Sender: FDA-Public Use
  Company Number: 580903

PATIENT
  Age: 71 Year
  Sex: Male

DRUGS (2)
  1. CIPROFLOXACIN [Suspect]
     Indication: ANTIBIOTIC THERAPY
     Dosage: 400 MG MILLIGRAM(S), 2 DAY, INTRAVENOUS
     Route: 042
  2. CLINDAMYCIN [Concomitant]

REACTIONS (6)
  - BURNING SENSATION [None]
  - GANGRENE [None]
  - HAEMORRHAGE [None]
  - LEG AMPUTATION [None]
  - PRURITUS [None]
  - VASCULITIS [None]
